FAERS Safety Report 19396043 (Version 1)
Quarter: 2021Q2

REPORT INFORMATION
  Report Type: Report from Study
  Country: None (occurrence: US)
  Receive Date: 20210610
  Receipt Date: 20210610
  Transmission Date: 20210717
  Serious: Yes (Other)
  Sender: FDA-Public Use
  Company Number: US-ABBVIE-21K-163-3936166-00

PATIENT
  Age: 63 Year
  Sex: Female

DRUGS (2)
  1. HUMIRA [Suspect]
     Active Substance: ADALIMUMAB
     Indication: PSORIATIC ARTHROPATHY
     Dosage: CF
     Route: 058
  2. STEROIDS PACK [Concomitant]
     Indication: PRODUCT USED FOR UNKNOWN INDICATION
     Route: 065

REACTIONS (4)
  - Tinnitus [Recovering/Resolving]
  - Deafness unilateral [Recovering/Resolving]
  - Ear discomfort [Recovering/Resolving]
  - Hypoacusis [Recovering/Resolving]

NARRATIVE: CASE EVENT DATE: 2021
